FAERS Safety Report 12678427 (Version 1)
Quarter: 2016Q3

REPORT INFORMATION
  Report Type: Other
  Country: None (occurrence: US)
  Receive Date: 20160823
  Receipt Date: 20160823
  Transmission Date: 20161109
  Serious: Yes (Hospitalization)
  Sender: FDA-Public Use
  Company Number: US-TEC LABORATORIES INC.-1056688

PATIENT
  Age: 67 Year
  Sex: Female
  Weight: 61.36 kg

DRUGS (1)
  1. TECNU EXTREME [Suspect]
     Active Substance: HOMEOPATHICS
     Indication: EXPOSURE TO TOXIC AGENT
     Route: 061
     Dates: start: 20160527, end: 20160529

REACTIONS (1)
  - Hospitalisation [Recovered/Resolved]

NARRATIVE: CASE EVENT DATE: 20160608
